FAERS Safety Report 9160390 (Version 1)
Quarter: 2013Q1

REPORT INFORMATION
  Report Type: Spontaneous
  Country: DK (occurrence: None)
  Receive Date: 20130215
  Receipt Date: 20130215
  Transmission Date: 20140127
  Serious: Yes (Other)
  Sender: FDA-Public Use
  Company Number: 2013MA001148

PATIENT
  Age: 66 Year
  Sex: Female

DRUGS (3)
  1. BISOPROLOL FUMARATE AND HYDROCHLOROTHIAZIDE TABLETS, 10 MG/6.25 MG (PUREPAC) (GALENIC/ BISOPROLOL/ HYDROCHLOROTHIAZIDE/) [Suspect]
     Dates: start: 20130119
  2. ROSUVASTATIN [Concomitant]
  3. PIRACETAM [Concomitant]

REACTIONS (1)
  - Asphyxia [None]
